FAERS Safety Report 7432763-5 (Version None)
Quarter: 2011Q2

REPORT INFORMATION
  Report Type: 
  Country: None (occurrence: None)
  Receive Date: 20110422
  Receipt Date: 20110413
  Transmission Date: 20111010
  Serious: Yes (Hospitalization)
  Sender: FDA-Public Use
  Company Number: A0924033A

PATIENT
  Age: 38 Year
  Sex: Female

DRUGS (1)
  1. VALTREX [Suspect]
     Route: 048
     Dates: start: 20110404

REACTIONS (5)
  - ERYTHEMA [None]
  - RASH MORBILLIFORM [None]
  - RASH [None]
  - BURNING SENSATION [None]
  - LARYNGEAL OEDEMA [None]
